FAERS Safety Report 6644312-X (Version None)
Quarter: 2010Q1

REPORT INFORMATION
  Report Type: 
  Country: None (occurrence: None)
  Receive Date: 20100322
  Receipt Date: 20100315
  Transmission Date: 20100710
  Serious: Yes (Life-Threatening, Hospitalization)
  Sender: FDA-Public Use
  Company Number: CZ-ELI_LILLY_AND_COMPANY-CZ201002000505

PATIENT
  Sex: Female
  Weight: 68 kg

DRUGS (6)
  1. GEMCITABINE HCL [Suspect]
     Indication: BREAST CANCER METASTATIC
     Dosage: 1000 MG/M2 (1650MG), ON DAY ONE AND EIGHT EVERY THREE WEEKS
     Route: 042
     Dates: start: 20100119, end: 20100119
  2. VINFLUNINE [Suspect]
     Indication: BREAST CANCER METASTATIC
     Dosage: 320 MG/M2 (530MG), ON DAY 1
     Route: 042
     Dates: start: 20100119, end: 20100119
  3. DUPHALAC [Concomitant]
     Dates: start: 20100118, end: 20100126
  4. NIZORAL [Concomitant]
     Dates: start: 20100121, end: 20100126
  5. HYPNOGEN [Concomitant]
     Dates: start: 20100112, end: 20100125
  6. OMEPRAZOLE [Concomitant]
     Dates: start: 20100112

REACTIONS (5)
  - DEVICE RELATED SEPSIS [None]
  - ENCEPHALOPATHY [None]
  - ENTEROCOLITIS [None]
  - LEUKOPENIA [None]
  - NEUTROPENIA [None]
